FAERS Safety Report 10622421 (Version 1)
Quarter: 2014Q4

REPORT INFORMATION
  Report Type: Spontaneous
  Country: US (occurrence: None)
  Receive Date: 20141201
  Receipt Date: 20141201
  Transmission Date: 20150529
  Serious: Yes (Life-Threatening, Hospitalization, Disabling)
  Sender: FDA-Public Use
  Company Number: None

PATIENT
  Age: 28 Year
  Sex: Female
  Weight: 72.12 kg

DRUGS (1)
  1. ORTHO CYCLEN [Suspect]
     Active Substance: ETHINYL ESTRADIOL\NORGESTIMATE
     Indication: CONTRACEPTION
     Dosage: 1 PO QD
     Route: 048
     Dates: start: 20140803, end: 20140818

REACTIONS (3)
  - Thrombotic stroke [None]
  - Musculoskeletal disorder [None]
  - Postoperative wound infection [None]

NARRATIVE: CASE EVENT DATE: 20140819
